FAERS Safety Report 6378350-1 (Version None)
Quarter: 2009Q3

REPORT INFORMATION
  Report Type: 
  Country: None (occurrence: None)
  Receive Date: 20090925
  Receipt Date: 20090710
  Transmission Date: 20100115
  Serious: Yes (Other)
  Sender: FDA-Public Use
  Company Number: US-ASTRAZENECA-2009UW04006

PATIENT
  Age: 26 Year
  Sex: Female
  Weight: 113.4 kg

DRUGS (12)
  1. SEROQUEL [Suspect]
     Indication: BIPOLAR DISORDER
     Route: 048
     Dates: start: 20030201, end: 20060101
  2. SEROQUEL [Suspect]
     Indication: DEPRESSION
     Route: 048
     Dates: start: 20030201, end: 20060101
  3. SEROQUEL [Suspect]
     Indication: ANXIETY
     Route: 048
     Dates: start: 20030201, end: 20060101
  4. SEROQUEL [Suspect]
     Indication: POST-TRAUMATIC STRESS DISORDER
     Route: 048
     Dates: start: 20030201, end: 20060101
  5. SEROQUEL [Suspect]
     Indication: AFFECTIVE DISORDER
     Route: 048
     Dates: start: 20030201, end: 20060101
  6. RISPERDAL [Concomitant]
     Dates: start: 20070706, end: 20070901
  7. ABILIFY [Concomitant]
     Dates: start: 20080307, end: 20080411
  8. GEODON [Concomitant]
     Dates: start: 20060330
  9. CELEXA [Concomitant]
     Dates: start: 20010101
  10. INVEGA [Concomitant]
     Dates: start: 20070901
  11. PROZAC [Concomitant]
  12. ZOLOFT [Concomitant]
     Dates: start: 20020913, end: 20050204

REACTIONS (7)
  - ARTHRITIS [None]
  - BLOOD CHOLESTEROL INCREASED [None]
  - DEHYDRATION [None]
  - HYPERTENSION [None]
  - OBESITY [None]
  - SUICIDAL IDEATION [None]
  - TYPE 2 DIABETES MELLITUS [None]
